FAERS Safety Report 10537298 (Version 3)
Quarter: 2015Q2

REPORT INFORMATION
  Report Type: Report from Study
  Country: BR (occurrence: BR)
  Receive Date: 20141023
  Receipt Date: 20150623
  Transmission Date: 20150821
  Serious: Yes (Hospitalization)
  Sender: FDA-Public Use
  Company Number: BR-BIOGENIDEC-2014BI104421

PATIENT
  Age: 41 Year
  Sex: Female

DRUGS (8)
  1. AVONEX [Suspect]
     Active Substance: INTERFERON BETA-1A
     Indication: MULTIPLE SCLEROSIS
     Route: 030
     Dates: start: 201402
  2. HIRUDOID [Concomitant]
     Active Substance: GLYCOSAMINOGLYCANS
     Indication: INJECTION SITE PAIN
  3. IBUPROFEN. [Concomitant]
     Active Substance: IBUPROFEN
     Indication: PREMEDICATION
  4. IBUPROFEN. [Concomitant]
     Active Substance: IBUPROFEN
     Indication: INJECTION SITE PAIN
  5. IBUPROFEN. [Concomitant]
     Active Substance: IBUPROFEN
     Indication: INJECTION SITE HAEMORRHAGE
  6. NAPROXEN. [Concomitant]
     Active Substance: NAPROXEN
     Indication: INJECTION SITE PAIN
  7. HIRUDOID [Concomitant]
     Active Substance: GLYCOSAMINOGLYCANS
     Indication: INJECTION SITE HAEMORRHAGE
  8. HIRUDOID [Concomitant]
     Active Substance: GLYCOSAMINOGLYCANS
     Indication: HEADACHE

REACTIONS (7)
  - Injection site haemorrhage [Recovered/Resolved]
  - Headache [Unknown]
  - Multiple sclerosis relapse [Recovered/Resolved]
  - Injection site pain [Not Recovered/Not Resolved]
  - Drug dose omission [Unknown]
  - Multiple sclerosis [Unknown]
  - Myalgia [Unknown]

NARRATIVE: CASE EVENT DATE: 20140926
